FAERS Safety Report 6656804-8 (Version None)
Quarter: 2010Q1

REPORT INFORMATION
  Report Type: 
  Country: None (occurrence: None)
  Receive Date: 20100324
  Receipt Date: 20100311
  Transmission Date: 20100710
  Serious: Yes (Hospitalization)
  Sender: FDA-Public Use
  Company Number: GP-10-03-0015

PATIENT
  Age: 66 Year
  Sex: Female

DRUGS (1)
  1. LITHIUM (300 MG, UNK) [Suspect]
     Indication: BIPOLAR DISORDER
     Dosage: 300 MG/DAY

REACTIONS (11)
  - CONFUSIONAL STATE [None]
  - FAMILIAL HYPOCALCIURIC HYPERCALCAEMIA [None]
  - FATIGUE [None]
  - GOITRE [None]
  - HYPERPARATHYROIDISM [None]
  - IRRITABILITY [None]
  - MUCOUS MEMBRANE DISORDER [None]
  - PARATHYROID GLAND ENLARGEMENT [None]
  - PARATHYROID TUMOUR BENIGN [None]
  - PARATHYROIDECTOMY [None]
  - VOMITING [None]
